FAERS Safety Report 5778301-4 (Version None)
Quarter: 2008Q2

REPORT INFORMATION
  Report Type: 
  Country: None (occurrence: None)
  Receive Date: 20080619
  Receipt Date: 20080512
  Transmission Date: 20081010
  Serious: No
  Sender: FDA-Public Use
  Company Number: US-BAYER-200812287BCC

PATIENT
  Age: 59 Year
  Sex: Female
  Weight: 102 kg

DRUGS (2)
  1. ALEVE (CAPLET) [Suspect]
     Indication: ARTHRITIS
     Route: 048
     Dates: start: 20050101
  2. ZOCOR [Concomitant]

REACTIONS (3)
  - DYSGEUSIA [None]
  - ERYTHEMA [None]
  - FEELING HOT [None]
